FAERS Safety Report 5093229-3 (Version None)
Quarter: 2006Q3

REPORT INFORMATION
  Report Type: 
  Country: None (occurrence: None)
  Receive Date: 20060829
  Receipt Date: 20060829
  Transmission Date: 20061208
  Serious: Yes (Hospitalization)
  Sender: FDA-Public Use
  Company Number: None

PATIENT
  Age: 77 Year
  Sex: Female
  Weight: 75 kg

DRUGS (7)
  1. REVLIMID [Suspect]
     Indication: DISEASE RECURRENCE
     Dosage: 10 MG QD PO
     Route: 048
     Dates: start: 20060713, end: 20060726
  2. REVLIMID [Suspect]
     Indication: OVARIAN CANCER METASTATIC
     Dosage: 10 MG QD PO
     Route: 048
     Dates: start: 20060713, end: 20060726
  3. REVLIMID [Suspect]
  4. PEPCID AC [Concomitant]
  5. HYDROCHLOROTHIAZIDE [Concomitant]
  6. K-DUR 10 [Concomitant]
  7. ASPIRIN [Concomitant]

REACTIONS (2)
  - BURNING SENSATION [None]
  - CHEST PAIN [None]
